FAERS Safety Report 6786404-0 (Version None)
Quarter: 2010Q2

REPORT INFORMATION
  Report Type: 
  Country: None (occurrence: None)
  Receive Date: 20100623
  Receipt Date: 20100616
  Transmission Date: 20101027
  Serious: Yes (Hospitalization)
  Sender: FDA-Public Use
  Company Number: A0794394A

PATIENT
  Age: 62 Year
  Sex: Male
  Weight: 105.9 kg

DRUGS (10)
  1. AVANDIA [Suspect]
     Dosage: 8MG PER DAY
     Route: 048
     Dates: start: 20050808, end: 20060825
  2. LISINOPRIL [Concomitant]
  3. VYTORIN [Concomitant]
  4. PROTONIX [Concomitant]
  5. ZOCOR [Concomitant]
  6. TOPROL-XL [Concomitant]
  7. ZETIA [Concomitant]
  8. LISINOPRIL [Concomitant]
  9. AMBIEN [Concomitant]
  10. CELEBREX [Concomitant]

REACTIONS (2)
  - CORONARY ARTERY DISEASE [None]
  - MYOCARDIAL INFARCTION [None]
